FAERS Safety Report 20559745 (Version 1)
Quarter: 2022Q1

REPORT INFORMATION
  Report Type: Spontaneous
  Country: IT (occurrence: IT)
  Receive Date: 20220307
  Receipt Date: 20220307
  Transmission Date: 20220423
  Serious: Yes (Other)
  Sender: FDA-Public Use
  Company Number: IT-NOVARTISPH-NVSC2022IT052161

PATIENT
  Age: 76 Year
  Sex: Male

DRUGS (2)
  1. ZOMETA [Suspect]
     Active Substance: ZOLEDRONIC ACID
     Indication: Prostate cancer metastatic
     Dosage: 1 DOSAGE FORM, CYCLIC
     Route: 042
     Dates: start: 20120508, end: 20121218
  2. DOCETAXEL [Concomitant]
     Active Substance: DOCETAXEL
     Indication: Prostate cancer metastatic
     Dosage: 30 MG
     Route: 042
     Dates: start: 20111122, end: 20120522

REACTIONS (1)
  - Osteonecrosis of jaw [Unknown]

NARRATIVE: CASE EVENT DATE: 20130515
